FAERS Safety Report 5056354-9 (Version None)
Quarter: 2006Q3

REPORT INFORMATION
  Report Type: 
  Country: None (occurrence: None)
  Receive Date: 20060717
  Receipt Date: 20060704
  Transmission Date: 20061208
  Serious: Yes (Hospitalization)
  Sender: FDA-Public Use
  Company Number: HQWYE561505JUL06

PATIENT
  Age: 81 Year
  Sex: Female

DRUGS (16)
  1. INIPOMP (PANTOPRAZOLE) [Suspect]
  2. COUMADIN [Suspect]
     Dosage: DF
     Dates: start: 20060402, end: 20060504
  3. INDAPAMIDE [Suspect]
     Dosage: DF
     Route: 048
     Dates: start: 20060412, end: 20060510
  4. LASIX [Suspect]
  5. MIRTAZAPINE [Suspect]
     Dosage: DF
     Dates: start: 20060323, end: 20060510
  6. OFLOXACIN [Suspect]
     Dosage: DF
     Dates: start: 20060427, end: 20060508
  7. PLAVIX [Suspect]
     Dosage: DF
     Route: 048
     Dates: start: 20060506, end: 20060510
  8. CITALOPRAM HYDROBROMIDE [Suspect]
  9. TAHOR (ATORVASTATIN) [Suspect]
     Route: 048
  10. RAMIPRIL [Concomitant]
  11. DIGOXIN [Concomitant]
  12. POTASSIUM CHLORIDE [Concomitant]
  13. ACETAMINOPHEN [Concomitant]
  14. CALCIPARINE [Concomitant]
  15. LOVENOX [Concomitant]
  16. ENOXAPARIN SODIUM [Concomitant]

REACTIONS (4)
  - AGRANULOCYTOSIS [None]
  - ANAEMIA [None]
  - CREATININE RENAL CLEARANCE DECREASED [None]
  - PLATELET COUNT DECREASED [None]
